FAERS Safety Report 10058586 (Version 1)
Quarter: 2014Q2

REPORT INFORMATION
  Report Type: Spontaneous
  Country: US (occurrence: US)
  Receive Date: 20140404
  Receipt Date: 20140404
  Transmission Date: 20141212
  Serious: No
  Sender: FDA-Public Use
  Company Number: US-MALLINCKRODT-T201304818

PATIENT
  Age: 73 Year
  Sex: Female
  Weight: 72.56 kg

DRUGS (2)
  1. RESTORIL [Suspect]
     Indication: INSOMNIA
     Dosage: 15 MG, PRN (AROUND TWO DOSES PER MONTH)
     Route: 048
  2. TRAZODONE [Concomitant]
     Indication: INSOMNIA
     Route: 048

REACTIONS (1)
  - Therapeutic response changed [Not Recovered/Not Resolved]
